FAERS Safety Report 15466074 (Version 2)
Quarter: 2018Q4

REPORT INFORMATION
  Report Type: Spontaneous
  Country: US (occurrence: US)
  Receive Date: 20181004
  Receipt Date: 20181221
  Transmission Date: 20190204
  Serious: Yes (Other)
  Sender: FDA-Public Use
  Company Number: US-COOPERSURGICAL, INC.-US-2018CPS033193

PATIENT

DRUGS (1)
  1. PARAGARD T 380A [Suspect]
     Active Substance: COPPER
     Indication: CONTRACEPTION
     Dosage: UNK
     Route: 015
     Dates: start: 20150212, end: 20180910

REACTIONS (11)
  - Complication of device removal [Recovered/Resolved]
  - Discomfort [Unknown]
  - Device material issue [Recovered/Resolved]
  - Device breakage [Recovered/Resolved]
  - Vaginal haemorrhage [Unknown]
  - Menorrhagia [Unknown]
  - Procedural haemorrhage [Recovered/Resolved]
  - Procedural pain [Unknown]
  - Muscle spasms [Unknown]
  - Foreign body in urogenital tract [Not Recovered/Not Resolved]
  - Device expulsion [Recovered/Resolved]

NARRATIVE: CASE EVENT DATE: 20150212
